FAERS Safety Report 15330432 (Version 1)
Quarter: 2018Q3

REPORT INFORMATION
  Report Type: Spontaneous
  Country: US (occurrence: US)
  Receive Date: 20180824
  Receipt Date: 20180824
  Transmission Date: 20181010
  Serious: Yes (Disabling, Other)
  Sender: FDA-Public Use
  Company Number: None

PATIENT
  Age: 66 Year
  Sex: Male
  Weight: 86.18 kg

DRUGS (13)
  1. GABAPENTIN. [Concomitant]
     Active Substance: GABAPENTIN
  2. VITAMIN B12 [Concomitant]
     Active Substance: CYANOCOBALAMIN
  3. MORPHINE [Concomitant]
     Active Substance: MORPHINE
  4. ANDROGEL [Concomitant]
     Active Substance: TESTOSTERONE
  5. GADOLINUM [Suspect]
     Active Substance: GADOLINIUM
     Indication: CONTRAST MEDIA DEPOSITION
     Dates: start: 1992, end: 20180522
  6. OXYCONTIN [Concomitant]
     Active Substance: OXYCODONE HYDROCHLORIDE
  7. ANDROGEL [Concomitant]
     Active Substance: TESTOSTERONE
  8. VITAMIN C [Concomitant]
     Active Substance: ASCORBIC ACID
  9. NIACIN. [Concomitant]
     Active Substance: NIACIN
  10. FLOMAX [Concomitant]
     Active Substance: TAMSULOSIN HYDROCHLORIDE
  11. VITAMIN D3 [Concomitant]
     Active Substance: CHOLECALCIFEROL
  12. TRAMADOL. [Concomitant]
     Active Substance: TRAMADOL
  13. VITAMIN E [Concomitant]
     Active Substance: .ALPHA.-TOCOPHEROL

REACTIONS (7)
  - Bone atrophy [None]
  - Bone pain [None]
  - Feeling abnormal [None]
  - Muscle twitching [None]
  - Muscle spasms [None]
  - Amnesia [None]
  - Skin discolouration [None]
